FAERS Safety Report 6666579-4 (Version None)
Quarter: 2010Q2

REPORT INFORMATION
  Report Type: 
  Country: None (occurrence: None)
  Receive Date: 20100404
  Receipt Date: 20090729
  Transmission Date: 20101027
  Serious: No
  Sender: FDA-Public Use
  Company Number: US-ALLERGAN-0910282US

PATIENT
  Sex: Male

DRUGS (4)
  1. ZYMAR [Suspect]
     Indication: CONJUNCTIVITIS
     Dosage: 1 GTT, UNKNOWN
     Route: 047
     Dates: start: 20090721
  2. OMNIPRED [Suspect]
     Indication: CONJUNCTIVITIS
     Dosage: 1 GTT, UNK
     Route: 047
     Dates: start: 20090721
  3. XIBROM [Suspect]
     Indication: CONJUNCTIVITIS
     Dosage: 1 GTT, UNK
     Route: 047
     Dates: start: 20090721
  4. TETRACYCLINE [Concomitant]
     Route: 048

REACTIONS (2)
  - PHOTOPHOBIA [None]
  - VISION BLURRED [None]
